FAERS Safety Report 4699440-5 (Version None)
Quarter: 2005Q2

REPORT INFORMATION
  Report Type: 
  Country: None (occurrence: None)
  Receive Date: 20050622
  Receipt Date: 20050611
  Transmission Date: 20051028
  Serious: Yes (Hospitalization, Other)
  Sender: FDA-Public Use
  Company Number: A-CH2003-03431

PATIENT
  Age: 23 Year
  Sex: Female

DRUGS (6)
  1. TRACLEER [Suspect]
     Indication: PULMONARY HYPERTENSION
     Dates: start: 20020601
  2. SILDENAFIL CITRATE [Concomitant]
  3. PROGESTERONE [Concomitant]
  4. MINIHEP                  (HEPARIN SODIUM) [Concomitant]
  5. DEXAMETHASONE [Concomitant]
  6. OXYGEN                  (OXYGEN) [Concomitant]

REACTIONS (7)
  - CAESAREAN SECTION [None]
  - CARDIOPULMONARY FAILURE [None]
  - DYSPNOEA [None]
  - OXYGEN SATURATION DECREASED [None]
  - PREGNANCY [None]
  - PREMATURE LABOUR [None]
  - WEIGHT INCREASED [None]
